FAERS Safety Report 17404355 (Version 1)
Quarter: 2020Q1

REPORT INFORMATION
  Report Type: Spontaneous
  Country: US (occurrence: US)
  Receive Date: 20200211
  Receipt Date: 20200211
  Transmission Date: 20200409
  Serious: Yes (Other)
  Sender: FDA-Public Use
  Company Number: US-PFIZER INC-2020054437

PATIENT

DRUGS (1)
  1. COLESTID [Suspect]
     Active Substance: COLESTIPOL HYDROCHLORIDE
     Indication: CHANGE OF BOWEL HABIT
     Dosage: UNK

REACTIONS (3)
  - Off label use [Unknown]
  - Breast cancer [Unknown]
  - Drug effective for unapproved indication [Unknown]
